FAERS Safety Report 7588838-3 (Version None)
Quarter: 2011Q3

REPORT INFORMATION
  Report Type: 
  Country: None (occurrence: None)
  Receive Date: 20110705
  Receipt Date: 20110624
  Transmission Date: 20111222
  Serious: No
  Sender: FDA-Public Use
  Company Number: JP-JNJFOC-20110612236

PATIENT

DRUGS (3)
  1. FENTANYL-100 [Suspect]
     Route: 062
  2. FENTANYL-100 [Suspect]
     Route: 062
  3. FENTANYL-100 [Suspect]
     Indication: CANCER PAIN
     Dosage: 2 PATCHES OF 25 MCG/HR
     Route: 062

REACTIONS (3)
  - SENSATION OF HEAVINESS [None]
  - INCORRECT ROUTE OF DRUG ADMINISTRATION [None]
  - DYSPNOEA [None]
